FAERS Safety Report 25796447 (Version 1)
Quarter: 2025Q3

REPORT INFORMATION
  Report Type: Spontaneous
  Country: US (occurrence: US)
  Receive Date: 20250912
  Receipt Date: 20250912
  Transmission Date: 20251020
  Serious: No
  Sender: BAYER HEALTHCARE LLC
  Company Number: US-BAYER-2025A121017

PATIENT
  Age: 74 Year
  Sex: Female

DRUGS (2)
  1. MIRALAX [Suspect]
     Active Substance: POLYETHYLENE GLYCOL 3350
     Indication: Gastrointestinal disorder
     Dosage: UNK UNK, QD, BASED ON THE RECOMMENDED DOSAGE WITH GATORADE EVERY NIGHT DOSE
     Route: 048
     Dates: end: 20250910
  2. High blood pressurure [Concomitant]
     Indication: Hypertension

REACTIONS (1)
  - Drug ineffective [Unknown]
